FAERS Safety Report 7290915-1 (Version None)
Quarter: 2011Q1

REPORT INFORMATION
  Report Type: 
  Country: None (occurrence: None)
  Receive Date: 20110214
  Receipt Date: 20110204
  Transmission Date: 20110831
  Serious: Yes (Hospitalization, Other)
  Sender: FDA-Public Use
  Company Number: US-GENZYME-CLOF-1001383

PATIENT
  Sex: Female
  Weight: 62 kg

DRUGS (15)
  1. ANTIVIRALS NOS [Concomitant]
     Indication: ANTIVIRAL PROPHYLAXIS
     Dosage: UNK
     Route: 065
  2. ANTIFUNGALS [Concomitant]
     Indication: ANTIFUNGAL PROPHYLAXIS
     Dosage: UNK
     Route: 065
  3. CALCIUM [Concomitant]
     Indication: PRODUCT USED FOR UNKNOWN INDICATION
     Dosage: UNK
     Route: 065
  4. BACTRIM [Concomitant]
     Indication: NEUTROPENIA
     Dosage: 1 DOUBLE STRENGTH TABLET, BID
     Route: 065
     Dates: start: 20080201
  5. ATENOLOL [Concomitant]
     Indication: PRODUCT USED FOR UNKNOWN INDICATION
     Dosage: 50 MG, QD
     Route: 065
  6. NEULASTA [Concomitant]
     Indication: PRODUCT USED FOR UNKNOWN INDICATION
     Dosage: UNK
     Route: 065
  7. CLOLAR [Suspect]
     Indication: B-CELL LYMPHOMA
     Dosage: 4 MG/M2, QDX5
     Route: 042
     Dates: start: 20080211, end: 20080215
  8. HYDROCHLOROTHIAZIDE [Concomitant]
     Indication: PRODUCT USED FOR UNKNOWN INDICATION
     Dosage: 50 MG, QD
     Route: 065
  9. VICODIN [Concomitant]
     Indication: PRODUCT USED FOR UNKNOWN INDICATION
     Dosage: 5/500 MG, QD
     Route: 065
  10. XANAX [Concomitant]
     Indication: PRODUCT USED FOR UNKNOWN INDICATION
     Dosage: 0.5 MG, QS
     Route: 065
  11. ZOCOR [Concomitant]
     Indication: PRODUCT USED FOR UNKNOWN INDICATION
     Dosage: 40 MG, QD
     Route: 065
  12. CLOLAR [Suspect]
     Dosage: 3 MG/M2, QDX5
     Route: 042
     Dates: start: 20080310, end: 20080314
  13. MOTRIN [Concomitant]
     Indication: PRODUCT USED FOR UNKNOWN INDICATION
     Dosage: 800 MG, QD
     Route: 065
  14. CELEXA [Concomitant]
     Indication: PRODUCT USED FOR UNKNOWN INDICATION
     Dosage: 40 MG, QD
     Route: 065
  15. ASPIRIN [Concomitant]
     Indication: PRODUCT USED FOR UNKNOWN INDICATION
     Dosage: 325 MG, QD
     Route: 065

REACTIONS (5)
  - RENAL FAILURE [None]
  - RENAL IMPAIRMENT [None]
  - THROMBOCYTOPENIA [None]
  - NEUTROPENIA [None]
  - ANAEMIA [None]
